FAERS Safety Report 4537132-3 (Version None)
Quarter: 2004Q4

REPORT INFORMATION
  Report Type: 
  Country: None (occurrence: None)
  Receive Date: 20041223
  Receipt Date: 20041216
  Transmission Date: 20050328
  Serious: Yes (Hospitalization)
  Sender: FDA-Public Use
  Company Number: FR-AMGEN-UK103669

PATIENT
  Sex: Female
  Weight: 50 kg

DRUGS (12)
  1. NEUPOGEN [Suspect]
     Indication: HIV INFECTION
     Route: 058
     Dates: start: 20040625, end: 20041020
  2. RIFABUTIN [Suspect]
     Route: 065
     Dates: start: 20040525, end: 20040920
  3. NORVIR [Concomitant]
     Route: 048
     Dates: start: 20040615
  4. CRIXIVAN [Concomitant]
     Route: 065
     Dates: start: 20040615
  5. VIDEX [Concomitant]
     Route: 065
     Dates: start: 20040615
  6. EPIVIR [Concomitant]
     Route: 065
     Dates: start: 20040615
  7. FOSCARNET SODIUM [Concomitant]
     Route: 065
     Dates: start: 20040401
  8. GANCICLOVIR [Concomitant]
     Dates: start: 20040619
  9. ATOVAQUONE [Concomitant]
     Route: 065
     Dates: start: 20040101
  10. TRIFLUCAN [Concomitant]
  11. CLARITHROMYCIN [Concomitant]
     Route: 048
     Dates: start: 20040525
  12. ETHAMBUTOL [Concomitant]
     Route: 065
     Dates: start: 20040525

REACTIONS (2)
  - NEUTROPENIA [None]
  - UVEITIS [None]
